FAERS Safety Report 10022409 (Version 2)
Quarter: 2014Q2

REPORT INFORMATION
  Report Type: Spontaneous
  Country: FR (occurrence: FR)
  Receive Date: 20140319
  Receipt Date: 20140529
  Transmission Date: 20141212
  Serious: Yes (Other)
  Sender: FDA-Public Use
  Company Number: CHPA2014FR004057

PATIENT
  Age: 75 Year
  Sex: Female

DRUGS (5)
  1. NICOTINELL TTS [Suspect]
     Indication: SMOKING CESSATION THERAPY
     Dosage: 1/2 PATCH, QD
     Route: 062
  2. NICOTINELL TTS [Suspect]
     Indication: OFF LABEL USE
     Dosage: 21 MG, QD
     Route: 062
  3. NICOPASS//NICOTINE [Suspect]
     Indication: SMOKING CESSATION THERAPY
     Dosage: 7 DF, UNK
     Route: 048
  4. AVLOCARDYL [Concomitant]
     Dosage: 0.5 UNK, TWICE
  5. STILNOX [Concomitant]
     Dosage: 0.5 UNK, TWICE

REACTIONS (4)
  - Tachycardia [Recovered/Resolved]
  - Hot flush [Recovered/Resolved]
  - Headache [Recovered/Resolved]
  - Wrong technique in drug usage process [Unknown]
